FAERS Safety Report 19975034 (Version 1)
Quarter: 2021Q4

REPORT INFORMATION
  Report Type: Spontaneous
  Country: US (occurrence: US)
  Receive Date: 20211020
  Receipt Date: 20211020
  Transmission Date: 20220303
  Serious: No
  Sender: FDA-Public Use
  Company Number: US-ALLERGAN-2049654US

PATIENT
  Sex: Male

DRUGS (3)
  1. LINZESS [Suspect]
     Active Substance: LINACLOTIDE
     Indication: Constipation
     Dosage: 145 ?G, PRN
  2. LINZESS [Suspect]
     Active Substance: LINACLOTIDE
     Dosage: 144 ?G
  3. LINZESS [Suspect]
     Active Substance: LINACLOTIDE
     Dosage: 72 ?G, QAM

REACTIONS (4)
  - Inappropriate schedule of product administration [Unknown]
  - Off label use [Unknown]
  - Flatulence [Unknown]
  - Drug ineffective [Unknown]
